FAERS Safety Report 8425085-7 (Version None)
Quarter: 2012Q2

REPORT INFORMATION
  Report Type: 
  Country: None (occurrence: None)
  Receive Date: 20120611
  Receipt Date: 20120601
  Transmission Date: 20120825
  Serious: Yes (Hospitalization)
  Sender: FDA-Public Use
  Company Number: US-BAYER-2011-028619

PATIENT
  Age: 26 Year
  Sex: Female

DRUGS (6)
  1. LOVENOX [Concomitant]
     Indication: PULMONARY EMBOLISM
     Dosage: 40 MG/24HR, UNK
     Route: 058
     Dates: start: 20070413
  2. AZITHROMYCIN [Concomitant]
     Dosage: 250 MG, UNK
     Route: 048
  3. FLEXERIL [Concomitant]
  4. YASMIN [Suspect]
     Dosage: UNK
     Dates: start: 20051001, end: 20060401
  5. VICODIN [Concomitant]
     Dosage: UNK
     Dates: start: 20070413
  6. IBUPROFEN [Concomitant]
     Dosage: 800 MG, UNK
     Route: 048

REACTIONS (5)
  - EMOTIONAL DISTRESS [None]
  - PAIN [None]
  - INJURY [None]
  - ANXIETY [None]
  - PULMONARY EMBOLISM [None]
